FAERS Safety Report 9796722 (Version 2)
Quarter: 2014Q1

REPORT INFORMATION
  Report Type: Spontaneous
  Country: GB (occurrence: GB)
  Receive Date: 20140103
  Receipt Date: 20140122
  Transmission Date: 20141002
  Serious: Yes (Other)
  Sender: FDA-Public Use
  Company Number: GB-BAUSCH-BL-2013-007073

PATIENT
  Sex: Female

DRUGS (15)
  1. PREDNISOLONE [Suspect]
     Indication: NON-HODGKIN^S LYMPHOMA
     Dosage: UNKNOWN
     Route: 048
     Dates: start: 20130610
  2. PREDNISOLONE [Suspect]
     Dosage: UNKNOWN
     Route: 048
     Dates: start: 20130701
  3. PREDNISOLONE [Suspect]
     Dosage: UNKNOWN
     Route: 048
     Dates: start: 20130722
  4. CYCLOPHOSPHAMIDE [Suspect]
     Indication: NON-HODGKIN^S LYMPHOMA
     Dosage: UNKNOWN
     Dates: start: 20130610
  5. CYCLOPHOSPHAMIDE [Suspect]
     Dosage: UNKNOWN
     Dates: start: 20130701
  6. CYCLOPHOSPHAMIDE [Suspect]
     Dosage: UNKNOWN
     Dates: start: 20130722
  7. DOXORUBICIN [Suspect]
     Indication: NON-HODGKIN^S LYMPHOMA
     Dosage: UNKNOWN
     Dates: start: 20130610
  8. DOXORUBICIN [Suspect]
     Dosage: UNKNOWN
     Dates: start: 20130701
  9. DOXORUBICIN [Suspect]
     Dosage: UNKNOWN
     Dates: start: 20130722
  10. RITUXIMAB [Suspect]
     Indication: NON-HODGKIN^S LYMPHOMA
     Dosage: UNKNOWN
     Dates: start: 20130610
  11. RITUXIMAB [Suspect]
     Dosage: UNKNOWN
     Dates: start: 20130701
  12. RITUXIMAB [Suspect]
     Dosage: UNKNOWN
     Dates: start: 20130722
  13. VINCRISTINE [Suspect]
     Indication: NON-HODGKIN^S LYMPHOMA
     Dosage: UNKNOWN
     Dates: start: 20130610
  14. VINCRISTINE [Suspect]
     Dosage: UNKNOWN
     Dates: start: 20130701
  15. VINCRISTINE [Suspect]
     Dosage: UNKNOWN
     Dates: start: 20130722

REACTIONS (2)
  - Progressive multifocal leukoencephalopathy [Unknown]
  - Ascites [Unknown]
